FAERS Safety Report 7007161-9 (Version None)
Quarter: 2010Q3

REPORT INFORMATION
  Report Type: 
  Country: None (occurrence: None)
  Receive Date: 20100913
  Receipt Date: 20100901
  Transmission Date: 20110219
  Serious: Yes (Hospitalization)
  Sender: FDA-Public Use
  Company Number: WAES 0710USA02304

PATIENT
  Age: 40 Year
  Sex: Male

DRUGS (14)
  1. ISENTRESS [Suspect]
     Indication: HIV INFECTION
     Dosage: 800 MG/DAILY, PO
     Route: 048
     Dates: start: 20091016
  2. EFAVIRENZ [Suspect]
     Indication: HIV INFECTION
     Dosage: 600 MG/DAILY, PO; 600 MG/DAILY, PO; 600 MG/DAILY, PO
     Route: 048
     Dates: start: 20040614, end: 20041221
  3. EFAVIRENZ [Suspect]
     Indication: HIV INFECTION
     Dosage: 600 MG/DAILY, PO; 600 MG/DAILY, PO; 600 MG/DAILY, PO
     Route: 048
     Dates: start: 20051209, end: 20070711
  4. EFAVIRENZ [Suspect]
     Indication: HIV INFECTION
     Dosage: 600 MG/DAILY, PO; 600 MG/DAILY, PO; 600 MG/DAILY, PO
     Route: 048
     Dates: start: 20090717, end: 20091016
  5. EPIVIR [Suspect]
     Indication: HIV INFECTION
     Dosage: 150 MG/BID, PO; 300 MG/DAILY, PO
     Route: 048
     Dates: start: 20050722, end: 20050802
  6. EPIVIR [Suspect]
     Indication: HIV INFECTION
     Dosage: 150 MG/BID, PO; 300 MG/DAILY, PO
     Route: 048
     Dates: start: 20050803, end: 20071213
  7. NORVIR [Suspect]
     Indication: HIV INFECTION
     Dosage: 100 MG/DAILY, PO; 100 MG/DAILY, PO
     Route: 048
     Dates: start: 20041221, end: 20050121
  8. NORVIR [Suspect]
     Indication: HIV INFECTION
     Dosage: 100 MG/DAILY, PO; 100 MG/DAILY, PO
     Route: 048
     Dates: start: 20050622, end: 20070510
  9. VIREAD [Suspect]
     Indication: HIV INFECTION
     Dosage: 300 MG/DAILY, PO
     Route: 048
     Dates: start: 20050802, end: 20071213
  10. REYATAZ [Suspect]
     Indication: HIV INFECTION
     Dosage: 300 MG/DAILY, PO; 300 MG/DAILY, PO
     Route: 048
     Dates: start: 20041221, end: 20050121
  11. REYATAZ [Suspect]
     Indication: HIV INFECTION
     Dosage: 300 MG/DAILY, PO; 300 MG/DAILY, PO
     Route: 048
     Dates: start: 20050622, end: 20070510
  12. KALETRA [Suspect]
     Indication: HIV INFECTION
     Dosage: 6 DOSE/DAILY, PO; 4 DOSE/DAILY, PO; 1 TAB/DAILY, PO
     Route: 048
     Dates: start: 20040514, end: 20040530
  13. KALETRA [Suspect]
     Indication: HIV INFECTION
     Dosage: 6 DOSE/DAILY, PO; 4 DOSE/DAILY, PO; 1 TAB/DAILY, PO
     Route: 048
     Dates: start: 20070511, end: 20091016
  14. KALETRA [Suspect]
     Indication: HIV INFECTION
     Dosage: 6 DOSE/DAILY, PO; 4 DOSE/DAILY, PO; 1 TAB/DAILY, PO
     Route: 048
     Dates: start: 20071214

REACTIONS (1)
  - DIABETES MELLITUS INADEQUATE CONTROL [None]
